FAERS Safety Report 7203992-0 (Version None)
Quarter: 2010Q4

REPORT INFORMATION
  Report Type: 
  Country: None (occurrence: None)
  Receive Date: 20101230
  Receipt Date: 20101221
  Transmission Date: 20110411
  Serious: No
  Sender: FDA-Public Use
  Company Number: US-PFIZER INC-2010178266

PATIENT
  Sex: Male
  Weight: 97.506 kg

DRUGS (1)
  1. LYRICA [Suspect]
     Indication: PAIN
     Dosage: FREQUENCY: 3X/DAY,
     Dates: start: 20101220

REACTIONS (2)
  - DIZZINESS [None]
  - FATIGUE [None]
